FAERS Safety Report 8217197 (Version 3)
Quarter: 2013Q1

REPORT INFORMATION
  Report Type: Spontaneous
  Country: US (occurrence: None)
  Receive Date: 20111024
  Receipt Date: 20130220
  Transmission Date: 20140127
  Serious: Yes (Life-Threatening, Hospitalization, Other)
  Sender: FDA-Public Use
  Company Number: ADR-2011-11325

PATIENT
  Age: 14 Year
  Sex: Female

DRUGS (2)
  1. LIORESAL [Suspect]
     Indication: MUSCLE SPASTICITY
     Dosage: 398.2 MCG, DAILY, INTRA
     Route: 037
  2. LIORESAL [Suspect]
     Dosage: 398.2 MCG, DAILY, INTRA
     Route: 037

REACTIONS (10)
  - Device malfunction [None]
  - Withdrawal syndrome [None]
  - Pruritus [None]
  - Skin discolouration [None]
  - Muscle spasticity [None]
  - Hyperhidrosis [None]
  - Cold sweat [None]
  - Mental status changes [None]
  - Condition aggravated [None]
  - Device leakage [None]
